FAERS Safety Report 24914436 (Version 1)
Quarter: 2025Q1

REPORT INFORMATION
  Report Type: Spontaneous
  Country: GB (occurrence: GB)
  Receive Date: 20250203
  Receipt Date: 20250203
  Transmission Date: 20250409
  Serious: Yes (Hospitalization, Other)
  Sender: PIRAMAL
  Company Number: GB-PCCINC-2025-PPL-000052

PATIENT

DRUGS (8)
  1. SEVOFLURANE [Suspect]
     Active Substance: SEVOFLURANE
     Indication: Breast operation
     Dates: start: 20241219
  2. TEICOPLANIN [Suspect]
     Active Substance: TEICOPLANIN
     Indication: Product used for unknown indication
  3. ONDANSETRON [Suspect]
     Active Substance: ONDANSETRON
     Indication: Product used for unknown indication
  4. PROPOFOL [Concomitant]
     Active Substance: PROPOFOL
     Indication: Product used for unknown indication
  5. ROCURONIUM [Concomitant]
     Active Substance: ROCURONIUM BROMIDE
     Indication: Product used for unknown indication
  6. FENTANYL [Concomitant]
     Active Substance: FENTANYL
     Indication: Product used for unknown indication
  7. DEXAMETHASONE [Concomitant]
     Active Substance: DEXAMETHASONE
     Indication: Product used for unknown indication
  8. AMLODIPINE [Concomitant]
     Active Substance: AMLODIPINE BESYLATE
     Indication: Product used for unknown indication

REACTIONS (6)
  - Faeces discoloured [Unknown]
  - Chromaturia [Unknown]
  - Jaundice [Unknown]
  - Nausea [Unknown]
  - Hepatitis acute [Unknown]
  - Vomiting [Unknown]

NARRATIVE: CASE EVENT DATE: 20241227
